FAERS Safety Report 15858478 (Version 2)
Quarter: 2019Q1

REPORT INFORMATION
  Report Type: Report from Study
  Country: IT (occurrence: IT)
  Receive Date: 20190123
  Receipt Date: 20190222
  Transmission Date: 20190417
  Serious: Yes (Other)
  Sender: FDA-Public Use
  Company Number: IT-TEVA-2019-IT-100088

PATIENT
  Age: 75 Year
  Sex: Female

DRUGS (4)
  1. INTERLEUKIN-2 [Interacting]
     Active Substance: ALDESLEUKIN
     Indication: OVARIAN CANCER
     Dosage: 18 MUI/M 2 ON DAYS 4-6 AND DAYS 18-20
     Route: 041
  2. FLUOROURACIL. [Suspect]
     Active Substance: FLUOROURACIL
     Indication: OVARIAN CANCER
     Dosage: ON DAY 1
     Route: 040
  3. INTERLEUKIN-2 [Interacting]
     Active Substance: ALDESLEUKIN
     Indication: OVARIAN CANCER
     Dosage: 4.5 MUI/M 2 ON DAYS 3-6 AND DAYS 17-20
     Route: 058
  4. CYCLOPHOSPHAMIDE. [Interacting]
     Active Substance: CYCLOPHOSPHAMIDE
     Indication: OVARIAN CANCER
     Dosage: ON DAY 1
     Route: 042

REACTIONS (6)
  - Haemorrhagic anaemia [Recovered/Resolved]
  - Pyrexia [Unknown]
  - Product use issue [Unknown]
  - Drug interaction [Unknown]
  - Off label use [Unknown]
  - Influenza like illness [Unknown]
